FAERS Safety Report 11371731 (Version 1)
Quarter: 2015Q3

REPORT INFORMATION
  Report Type: Spontaneous
  Country: US (occurrence: US)
  Receive Date: 20150812
  Receipt Date: 20150812
  Transmission Date: 20151125
  Serious: Yes (Congenital Anomaly, Other)
  Sender: FDA-Public Use
  Company Number: US-ABBVIE-15P-163-1440281-00

PATIENT

DRUGS (1)
  1. DEPAKOTE [Suspect]
     Active Substance: DIVALPROEX SODIUM
     Indication: MATERNAL EXPOSURE TIMING UNSPECIFIED
     Route: 064

REACTIONS (23)
  - Congenital nose malformation [Unknown]
  - Mental impairment [Unknown]
  - Attention deficit/hyperactivity disorder [Unknown]
  - Physical disability [Unknown]
  - Abnormal behaviour [Unknown]
  - Malocclusion [Unknown]
  - Dysmorphism [Unknown]
  - Mental disability [Unknown]
  - Autism [Unknown]
  - Injury [Unknown]
  - Sensory integrative dysfunction [Unknown]
  - Anhedonia [Unknown]
  - Cognitive disorder [Unknown]
  - Fine motor delay [Unknown]
  - Nervous system disorder [Unknown]
  - Foetal exposure during pregnancy [Unknown]
  - Pain [Unknown]
  - Economic problem [Unknown]
  - Congenital anomaly [Unknown]
  - Obsessive-compulsive disorder [Unknown]
  - Palatal disorder [Unknown]
  - Speech disorder developmental [Unknown]
  - Emotional distress [Unknown]
